FAERS Safety Report 11588578 (Version 3)
Quarter: 2015Q4

REPORT INFORMATION
  Report Type: Report from Study
  Country: CA (occurrence: CA)
  Receive Date: 20151002
  Receipt Date: 20151228
  Transmission Date: 20160304
  Serious: Yes (Other)
  Sender: FDA-Public Use
  Company Number: PHHY2014CA046656

PATIENT
  Age: 73 Year
  Sex: Male

DRUGS (1)
  1. ZOMETA [Suspect]
     Active Substance: ZOLEDRONIC ACID
     Indication: PLASMA CELL MYELOMA
     Dosage: 3.3 MG, EVERY 4 WEEKS
     Route: 042
     Dates: start: 20140411

REACTIONS (9)
  - Blood glucose abnormal [Unknown]
  - Incorrect dose administered [Unknown]
  - Pneumonia [Unknown]
  - Tooth abscess [Unknown]
  - Malignant neoplasm progression [Unknown]
  - Body temperature decreased [Unknown]
  - Blood pressure abnormal [Unknown]
  - Plasma cell myeloma [Unknown]
  - Blood pressure systolic increased [Unknown]

NARRATIVE: CASE EVENT DATE: 2014
